FAERS Safety Report 6750368-6 (Version None)
Quarter: 2010Q2

REPORT INFORMATION
  Report Type: 
  Country: None (occurrence: None)
  Receive Date: 20100601
  Receipt Date: 20100527
  Transmission Date: 20101027
  Serious: Yes (Death)
  Sender: FDA-Public Use
  Company Number: FR-SANOFI-AVENTIS-2010SA030551

PATIENT
  Age: 53 Year
  Sex: Male

DRUGS (9)
  1. OXALIPLATIN [Suspect]
     Route: 041
     Dates: start: 20080516, end: 20080718
  2. BEVACIZUMAB [Suspect]
     Route: 041
     Dates: start: 20081013, end: 20090420
  3. FLUOROURACIL [Suspect]
     Route: 041
     Dates: start: 20081013, end: 20090420
  4. FOLINIC ACID [Suspect]
     Route: 041
     Dates: start: 20081013, end: 20090420
  5. IRINOTECAN [Suspect]
     Dates: start: 20081013, end: 20090420
  6. IRINOTECAN [Suspect]
     Dates: start: 20090806, end: 20090910
  7. CAPECITABINE [Suspect]
     Route: 041
     Dates: start: 20080516, end: 20080718
  8. CETUXIMAB [Suspect]
     Dates: start: 20090806, end: 20090917
  9. INVESTIGATIONAL DRUG [Suspect]
     Dates: start: 20090807, end: 20090924

REACTIONS (3)
  - GASTROINTESTINAL FISTULA [None]
  - PELVIC SEPSIS [None]
  - PERINEAL INFECTION [None]
